FAERS Safety Report 16540389 (Version 1)
Quarter: 2019Q3

REPORT INFORMATION
  Report Type: Report from Study
  Country: IT (occurrence: IT)
  Receive Date: 20190708
  Receipt Date: 20190708
  Transmission Date: 20191004
  Serious: Yes (Hospitalization)
  Sender: FDA-Public Use
  Company Number: IT-MYLANLABS-2019M1061930

PATIENT
  Age: 5 Year
  Sex: Female

DRUGS (1)
  1. KLACID 125 MG/5 ML GRANULATO PER SOSPENSIONE ORALE [Suspect]
     Active Substance: CLARITHROMYCIN
     Indication: INFECTION
     Dosage: 7.5 MILLILITER, TOTAL
     Route: 048
     Dates: start: 20180628, end: 20180628

REACTIONS (3)
  - Medication error [Recovering/Resolving]
  - Malaise [Recovering/Resolving]
  - Abdominal pain upper [Recovering/Resolving]

NARRATIVE: CASE EVENT DATE: 20180628
